FAERS Safety Report 4760396-8 (Version None)
Quarter: 2005Q3

REPORT INFORMATION
  Report Type: 
  Country: None (occurrence: None)
  Receive Date: 20050902
  Receipt Date: 20050824
  Transmission Date: 20060218
  Serious: Yes (Disabling)
  Sender: FDA-Public Use
  Company Number: GB-GLAXOSMITHKLINE-B0391722A

PATIENT
  Age: 60 Year
  Sex: Male

DRUGS (5)
  1. LAMOTRIGINE [Suspect]
     Indication: EPILEPSY
     Route: 048
  2. VALPROATE SODIUM [Concomitant]
     Indication: EPILEPSY
     Dosage: 1G PER DAY
     Route: 048
  3. MOVICOL [Concomitant]
     Indication: CONSTIPATION
     Route: 048
  4. GAVISCON [Concomitant]
     Indication: DYSPEPSIA
     Route: 048
  5. DIAZEPAM [Concomitant]
     Indication: EPILEPSY
     Route: 054

REACTIONS (2)
  - DIFFICULTY IN WALKING [None]
  - DYSPNOEA [None]
